FAERS Safety Report 6382204-4 (Version None)
Quarter: 2009Q3

REPORT INFORMATION
  Report Type: 
  Country: None (occurrence: None)
  Receive Date: 20090928
  Receipt Date: 20090928
  Transmission Date: 20100115
  Serious: Yes (Hospitalization)
  Sender: FDA-Public Use
  Company Number: None

PATIENT
  Sex: Female
  Weight: 77.1115 kg

DRUGS (1)
  1. LEVAQUIN [Suspect]
     Indication: PNEUMONIA
     Dosage: FROM DEC. 27 - THRU JAN 3

REACTIONS (3)
  - ARTHROPATHY [None]
  - HAEMOLYTIC ANAEMIA [None]
  - UNEVALUABLE EVENT [None]
